FAERS Safety Report 6700954-4 (Version None)
Quarter: 2010Q2

REPORT INFORMATION
  Report Type: 
  Country: None (occurrence: None)
  Receive Date: 20100428
  Receipt Date: 20100414
  Transmission Date: 20101027
  Serious: Yes (Hospitalization, Disabling)
  Sender: FDA-Public Use
  Company Number: GB-MYLANLABS-2009S1018856

PATIENT
  Age: 63 Year
  Sex: Male
  Weight: 80 kg

DRUGS (31)
  1. LANSOPRAZOLE [Suspect]
     Indication: DRUG USE FOR UNKNOWN INDICATION
     Dates: start: 20060725, end: 20060808
  2. OMEPRAZOLE [Suspect]
     Indication: DRUG USE FOR UNKNOWN INDICATION
     Route: 042
     Dates: start: 20050505, end: 20050527
  3. OMEPRAZOLE [Suspect]
     Route: 042
     Dates: start: 20060501
  4. OMEPRAZOLE [Suspect]
     Route: 042
     Dates: start: 20050601
  5. OMEPRAZOLE [Suspect]
     Route: 042
     Dates: start: 20051105
  6. OMEPRAZOLE [Suspect]
     Route: 042
     Dates: start: 20060209
  7. OMEPRAZOLE [Suspect]
     Route: 042
     Dates: start: 20060509
  8. OMEPRAZOLE [Suspect]
     Route: 042
     Dates: start: 20051009
  9. OMEPRAZOLE [Suspect]
     Dates: start: 20050910
  10. OMEPRAZOLE [Suspect]
     Route: 042
     Dates: start: 20060411
  11. OMEPRAZOLE [Suspect]
     Route: 042
     Dates: start: 20050811
  12. OMEPRAZOLE [Suspect]
     Route: 042
     Dates: start: 20060113
  13. OMEPRAZOLE [Suspect]
     Route: 042
     Dates: start: 20060313
  14. OMEPRAZOLE [Suspect]
     Route: 042
     Dates: start: 20051213
  15. OMEPRAZOLE [Suspect]
     Route: 042
     Dates: start: 20050714
  16. OMEPRAZOLE [Suspect]
     Route: 042
     Dates: start: 20051115
  17. OMEPRAZOLE [Suspect]
     Route: 042
     Dates: start: 20060617
  18. OMEPRAZOLE [Suspect]
     Route: 042
     Dates: start: 20050618
  19. OMEPRAZOLE [Suspect]
     Route: 042
     Dates: start: 20051018
  20. OMEPRAZOLE [Suspect]
     Route: 042
     Dates: start: 20050819
  21. OMEPRAZOLE [Suspect]
     Route: 042
     Dates: start: 20050920
  22. OMEPRAZOLE [Suspect]
     Route: 042
     Dates: start: 20060223
  23. OMEPRAZOLE [Suspect]
     Route: 042
     Dates: start: 20060527
  24. OMEPRAZOLE [Suspect]
     Route: 042
     Dates: start: 20050827
  25. OMEPRAZOLE [Suspect]
     Route: 042
     Dates: start: 20060328
  26. OMEPRAZOLE [Suspect]
     Route: 042
     Dates: start: 20051129
  27. OMEPRAZOLE [Suspect]
     Route: 042
     Dates: start: 20050630
  28. OMEPRAZOLE [Suspect]
     Route: 042
     Dates: start: 20050730
  29. PANTOPRAZOLE [Suspect]
     Indication: GASTROOESOPHAGEAL REFLUX DISEASE
  30. LOSEC I.V. [Suspect]
     Indication: GASTROOESOPHAGEAL REFLUX DISEASE
     Route: 048
     Dates: start: 20020101, end: 20060501
  31. RABEPRAZOLE SODIUM [Suspect]
     Indication: DRUG USE FOR UNKNOWN INDICATION

REACTIONS (4)
  - HYPOCALCAEMIA [None]
  - HYPOMAGNESAEMIA [None]
  - HYPOPARATHYROIDISM SECONDARY [None]
  - TETANY [None]
